FAERS Safety Report 5824913-9 (Version None)
Quarter: 2008Q3

REPORT INFORMATION
  Report Type: 
  Country: None (occurrence: None)
  Receive Date: 20080728
  Receipt Date: 20080716
  Transmission Date: 20090109
  Serious: Yes (Other)
  Sender: FDA-Public Use
  Company Number: CH-PFIZER INC-2008053811

PATIENT
  Sex: Male
  Weight: 70 kg

DRUGS (6)
  1. SUTENT [Suspect]
     Indication: RENAL CELL CARCINOMA
     Route: 048
     Dates: start: 20080602, end: 20080616
  2. ASPIRIN [Concomitant]
     Dosage: DAILY DOSE:100MG
     Route: 048
  3. BISOPROLOL FUMARATE [Concomitant]
     Dosage: DAILY DOSE:5MG-FREQ:IN THE MORNING
     Route: 048
  4. BISOPROLOL FUMARATE [Concomitant]
     Dosage: DAILY DOSE:2.5MG-FREQ:IN THE EVENING
  5. RAMIPRIL [Concomitant]
     Dosage: DAILY DOSE:2.5MG-FREQ:DAILY
     Route: 048
  6. PRAVASTATIN [Concomitant]
     Dosage: DAILY DOSE:40MG-FREQ:DAILY
     Route: 048

REACTIONS (5)
  - DYSGEUSIA [None]
  - DYSPHAGIA [None]
  - HYPERTENSION [None]
  - MUCOSAL EXFOLIATION [None]
  - SYNCOPE [None]
